FAERS Safety Report 11004301 (Version 1)
Quarter: 2015Q1

REPORT INFORMATION
  Report Type: Spontaneous
  Country: US (occurrence: None)
  Receive Date: 20150227
  Receipt Date: 20150227
  Transmission Date: 20150721
  Serious: Yes (Other)
  Sender: FDA-Public Use
  Company Number: 1323935

PATIENT
  Age: 7 Year
  Sex: Male
  Weight: 23 kg

DRUGS (2)
  1. NUTROPIN AQ [Suspect]
     Active Substance: SOMATROPIN
     Indication: GROWTH HORMONE DEFICIENCY
     Dosage: NIGHTLY FOR 2 WEEKS (0.2 MG 1 IN 1 D), SUBCUTANEOUS?
     Route: 058
  2. NUTROPIN AQ [Suspect]
     Active Substance: SOMATROPIN
     Indication: HYPOTHALAMO-PITUITARY DISORDER
     Dosage: NIGHTLY FOR 2 WEEKS (0.2 MG 1 IN 1 D), SUBCUTANEOUS?
     Route: 058

REACTIONS (2)
  - Intracranial pressure increased [None]
  - Vomiting [None]

NARRATIVE: CASE EVENT DATE: 20131107
